FAERS Safety Report 9675853 (Version 2)
Quarter: 2013Q4

REPORT INFORMATION
  Report Type: Report from Study
  Country: US (occurrence: US)
  Receive Date: 20131107
  Receipt Date: 20131107
  Transmission Date: 20140711
  Serious: Yes (Other)
  Sender: FDA-Public Use
  Company Number: US-ABBVIE-08P-163-0462421-00

PATIENT
  Sex: Female
  Weight: 77.18 kg

DRUGS (12)
  1. HUMIRA [Suspect]
     Indication: PSORIATIC ARTHROPATHY
     Dosage: SYRINGE
     Route: 058
     Dates: start: 2003, end: 200608
  2. HUMIRA [Suspect]
     Indication: PSORIASIS
     Route: 058
     Dates: start: 200608
  3. HUMIRA [Suspect]
  4. HUMIRA [Suspect]
     Indication: PSORIASIS
  5. MIRENA INTRAUTERINE DEVICE [Suspect]
     Indication: VAGINAL HAEMORRHAGE
     Dates: start: 201304
  6. CELEBREX [Concomitant]
     Indication: PAIN
     Route: 048
     Dates: start: 200806
  7. PREDNISONE [Concomitant]
     Indication: PSORIATIC ARTHROPATHY
  8. CELEXA [Concomitant]
     Indication: DEPRESSION
  9. CELEXA [Concomitant]
     Indication: ANXIETY
  10. CLONAZEPAM [Concomitant]
     Indication: ANXIETY
  11. CLARITIN [Concomitant]
     Indication: HYPERSENSITIVITY
  12. ETODOLAC [Concomitant]
     Indication: PSORIATIC ARTHROPATHY

REACTIONS (21)
  - Uterine leiomyoma [Recovered/Resolved]
  - Anaemia [Unknown]
  - Vaginal haemorrhage [Unknown]
  - Endometrial hypertrophy [Unknown]
  - Device dislocation [Not Recovered/Not Resolved]
  - Uterine injury [Recovered/Resolved]
  - Embedded device [Recovered/Resolved]
  - Injection site pain [Recovered/Resolved]
  - Injection site bruising [Recovered/Resolved]
  - Staphylococcal infection [Recovered/Resolved]
  - Syncope [Recovered/Resolved]
  - Influenza [Recovered/Resolved]
  - Pharyngitis [Recovered/Resolved]
  - Lymphadenopathy [Recovered/Resolved]
  - Rosacea [Recovering/Resolving]
  - Staphylococcal infection [Recovered/Resolved]
  - Urinary tract infection [Recovered/Resolved]
  - Sinusitis [Recovered/Resolved]
  - Psoriasis [Not Recovered/Not Resolved]
  - Psoriatic arthropathy [Not Recovered/Not Resolved]
  - Musculoskeletal stiffness [Not Recovered/Not Resolved]
